FAERS Safety Report 5080163-8 (Version None)
Quarter: 2006Q3

REPORT INFORMATION
  Report Type: 
  Country: None (occurrence: None)
  Receive Date: 20060810
  Receipt Date: 20060731
  Transmission Date: 20061208
  Serious: Yes (Other)
  Sender: FDA-Public Use
  Company Number: 2006094491

PATIENT
  Age: 60 Year
  Sex: Male

DRUGS (2)
  1. ZYVOX [Suspect]
     Indication: PNEUMONIA STAPHYLOCOCCAL
     Dosage: (1 IN 1 D), INTRAVENOUS
     Route: 042
     Dates: start: 20060728, end: 20060730
  2. FLUMARIN (FLOMOXEF SODIUM) [Concomitant]

REACTIONS (1)
  - MELAENA [None]
